FAERS Safety Report 7738804-X (Version None)
Quarter: 2011Q3

REPORT INFORMATION
  Report Type: 
  Country: None (occurrence: None)
  Receive Date: 20110909
  Receipt Date: 20110906
  Transmission Date: 20111222
  Serious: Yes (Hospitalization)
  Sender: FDA-Public Use
  Company Number: GB-BRISTOL-MYERS SQUIBB COMPANY-16038432

PATIENT

DRUGS (1)
  1. YERVOY [Suspect]
     Dosage: COMPLETED 4 INFUSIONS.

REACTIONS (3)
  - NEUTROPENIC SEPSIS [None]
  - DIARRHOEA [None]
  - HYPOTENSION [None]
